FAERS Safety Report 5743279-6 (Version None)
Quarter: 2008Q2

REPORT INFORMATION
  Report Type: 
  Country: None (occurrence: None)
  Receive Date: 20080519
  Receipt Date: 20080507
  Transmission Date: 20081010
  Serious: Yes (Hospitalization)
  Sender: FDA-Public Use
  Company Number: JP-PFIZER INC-2008041722

PATIENT
  Age: 71 Year
  Sex: Female

DRUGS (11)
  1. AMLODIN [Suspect]
     Indication: HYPERTENSION
     Dosage: DAILY DOSE:5MG
     Route: 048
  2. RIDAURA [Suspect]
     Dosage: DAILY DOSE:6MG
     Route: 048
  3. METHOTREXATE [Suspect]
  4. VALSARTAN [Suspect]
     Dosage: DAILY DOSE:160MG
     Route: 048
  5. METHOTREXATE [Concomitant]
     Dosage: DAILY DOSE:3MG
  6. AMARYL [Concomitant]
     Dosage: DAILY DOSE:1MG
     Route: 048
  7. PREDONINE [Concomitant]
     Dosage: DAILY DOSE:6MG
  8. PARIET [Concomitant]
     Dosage: DAILY DOSE:10MG
     Route: 048
  9. EVISTA [Concomitant]
     Dosage: DAILY DOSE:60MG
     Route: 048
  10. LIPITOR [Concomitant]
     Dosage: DAILY DOSE:10MG
     Route: 048
  11. HYPEN [Concomitant]
     Route: 048

REACTIONS (2)
  - ANAEMIA [None]
  - HAEMOGLOBIN DECREASED [None]
